FAERS Safety Report 8311546-8 (Version None)
Quarter: 2012Q1

REPORT INFORMATION
  Report Type: 
  Country: None (occurrence: None)
  Receive Date: 20120315
  Receipt Date: 20110614
  Transmission Date: 20120608
  Serious: No
  Sender: FDA-Public Use
  Company Number: PHHY2011US53601

PATIENT
  Age: 21 Year
  Sex: Female

DRUGS (2)
  1. LOSARTAN POTASSIUM [Concomitant]
  2. GILENYA [Suspect]
     Indication: MULTIPLE SCLEROSIS
     Dosage: 0.5 MG, QD, ORAL
     Route: 048
     Dates: start: 20110428

REACTIONS (2)
  - NAUSEA [None]
  - DIARRHOEA [None]
